FAERS Safety Report 9979573 (Version 1)
Quarter: 2014Q1

REPORT INFORMATION
  Report Type: Report from Study
  Country: US (occurrence: US)
  Receive Date: 20140306
  Receipt Date: 20140306
  Transmission Date: 20141002
  Serious: No
  Sender: FDA-Public Use
  Company Number: US-ABBVIE-13P-163-1168196-00

PATIENT
  Sex: Female
  Weight: 61.74 kg

DRUGS (6)
  1. HUMIRA [Suspect]
     Indication: RHEUMATOID ARTHRITIS
     Dates: start: 2012, end: 201309
  2. ZYRTEC [Concomitant]
     Indication: HYPERSENSITIVITY
  3. MULTIVITAMIN [Concomitant]
     Indication: VITAMIN SUPPLEMENTATION
  4. OMEGA 7 [Concomitant]
     Indication: VITAMIN SUPPLEMENTATION
  5. CALCIUM [Concomitant]
     Indication: MINERAL SUPPLEMENTATION
  6. XELJANZ [Concomitant]
     Indication: RHEUMATOID ARTHRITIS
     Dates: start: 2003

REACTIONS (2)
  - Drug ineffective [Not Recovered/Not Resolved]
  - Rash [Recovered/Resolved]
